FAERS Safety Report 8730370 (Version 3)
Quarter: 2012Q4

REPORT INFORMATION
  Report Type: 
  Country: US (occurrence: US)
  Receive Date: 20120817
  Receipt Date: 20120914
  Transmission Date: 20130627
  Serious: Yes (Death, Hospitalization)
  Sender: FDA-Public Use
  Company Number: US-CELGENEUS-163-20785-12072654

PATIENT
  Sex: Male

DRUGS (4)
  1. THALOMID [Suspect]
     Indication: MYELOFIBROSIS
     Dosage: 50 Milligram
     Route: 048
     Dates: start: 20120607, end: 20120704
  2. JAKAFI [Concomitant]
     Indication: DRUG USE FOR UNKNOWN INDICATION
     Dosage: 30 Milligram
     Route: 048
     Dates: start: 20120503
  3. PREDNISONE [Concomitant]
     Indication: DRUG USE FOR UNKNOWN INDICATION
     Dosage: 25 Milligram
     Route: 048
     Dates: start: 20120606
  4. PREDNISONE [Concomitant]
     Dosage: 12.5 Milligram
     Route: 048

REACTIONS (2)
  - Right ventricular failure [Fatal]
  - Myocardial infarction [Recovered/Resolved]
